FAERS Safety Report 6157533-X (Version None)
Quarter: 2009Q2

REPORT INFORMATION
  Report Type: 
  Country: None (occurrence: None)
  Receive Date: 20090416
  Receipt Date: 20090410
  Transmission Date: 20091009
  Serious: No
  Sender: FDA-Public Use
  Company Number: US-B.I. PHARMACEUTICALS,INC./RIDGEFIELD-2009-BP-04630BP

PATIENT
  Sex: Female

DRUGS (9)
  1. SPIRIVA [Suspect]
     Indication: CHRONIC OBSTRUCTIVE PULMONARY DISEASE
     Dosage: 18MCG
     Route: 055
     Dates: start: 20090101
  2. SPIRIVA [Suspect]
     Indication: EMPHYSEMA
  3. ALBUTEROL [Concomitant]
     Indication: CHRONIC OBSTRUCTIVE PULMONARY DISEASE
     Route: 055
  4. PLAVIX [Concomitant]
     Indication: RENAL FAILURE CHRONIC
     Dosage: 75MG
     Route: 048
  5. SENSIPAR [Concomitant]
     Indication: RENAL FAILURE CHRONIC
     Dosage: 60MG
     Route: 048
  6. LEVOTHYROXINE SODIUM [Concomitant]
     Indication: HYPOTHYROIDISM
     Dosage: .175MG
     Route: 048
  7. RENAGEL [Concomitant]
     Indication: RENAL FAILURE CHRONIC
     Dosage: 1600MG
     Route: 048
  8. PHOSLO [Concomitant]
     Indication: RENAL FAILURE CHRONIC
     Dosage: 676MG
     Route: 048
  9. DILTIAZEM [Concomitant]
     Dosage: 180MG
     Route: 048

REACTIONS (1)
  - AGEUSIA [None]
